FAERS Safety Report 5550345-7 (Version None)
Quarter: 2007Q4

REPORT INFORMATION
  Report Type: 
  Country: None (occurrence: None)
  Receive Date: 20071210
  Receipt Date: 20071128
  Transmission Date: 20080405
  Serious: Yes (Hospitalization)
  Sender: FDA-Public Use
  Company Number: T06-JPN-05422-01

PATIENT
  Age: 80 Year
  Sex: Female
  Weight: 39 kg

DRUGS (6)
  1. MEMANTINE HCL [Suspect]
     Indication: DEMENTIA ALZHEIMER'S TYPE
     Dosage: 15 MG QD PO
     Route: 048
     Dates: start: 20061019, end: 20061115
  2. PRAVASTATIN SODIUM [Concomitant]
  3. CALCITRIOL [Concomitant]
  4. POTASSIUM ASPARTATE/MAGNESIUM ASPARTATE [Concomitant]
  5. TOCOPHEROL CONCENTRATE CAP [Concomitant]
  6. OFLOXACIN [Concomitant]

REACTIONS (4)
  - BEDRIDDEN [None]
  - CONDITION AGGRAVATED [None]
  - DEMENTIA ALZHEIMER'S TYPE [None]
  - GENERAL PHYSICAL HEALTH DETERIORATION [None]
